FAERS Safety Report 17618928 (Version 2)
Quarter: 2020Q2

REPORT INFORMATION
  Report Type: Spontaneous
  Country: US (occurrence: US)
  Receive Date: 20200402
  Receipt Date: 20200519
  Transmission Date: 20200713
  Serious: Yes (Death, Hospitalization, Other)
  Sender: FDA-Public Use
  Company Number: US-NOVOPROD-720668

PATIENT
  Age: 86 Year
  Sex: Female

DRUGS (1)
  1. LEVEMIR [Suspect]
     Active Substance: INSULIN DETEMIR
     Indication: TYPE 2 DIABETES MELLITUS
     Dosage: 35 IU, QD
     Route: 058
     Dates: start: 2017

REACTIONS (4)
  - Ligament sprain [Recovering/Resolving]
  - Pleural effusion [Not Recovered/Not Resolved]
  - Oedema peripheral [Unknown]
  - Breast cancer [Fatal]

NARRATIVE: CASE EVENT DATE: 2017
